FAERS Safety Report 20580803 (Version 2)
Quarter: 2022Q1

REPORT INFORMATION
  Report Type: Spontaneous
  Country: BR (occurrence: BR)
  Receive Date: 20220311
  Receipt Date: 20220329
  Transmission Date: 20220423
  Serious: Yes (Other)
  Sender: FDA-Public Use
  Company Number: BR-BoehringerIngelheim-2022-BI-157802

PATIENT
  Age: 76 Year
  Sex: Female
  Weight: 88 kg

DRUGS (2)
  1. JARDIANCE [Suspect]
     Active Substance: EMPAGLIFLOZIN
     Indication: Blood glucose increased
     Dates: end: 201808
  2. JARDIANCE [Suspect]
     Active Substance: EMPAGLIFLOZIN
     Dosage: HALF A 25 MILLIGRAM TABLET
     Route: 048
     Dates: start: 20220219, end: 20220305

REACTIONS (28)
  - Myocardial infarction [Recovered/Resolved]
  - Angioedema [Unknown]
  - Malaise [Recovered/Resolved]
  - Urinary tract infection [Recovered/Resolved]
  - Dyspnoea [Unknown]
  - Cold sweat [Unknown]
  - Confusional state [Unknown]
  - Sluggishness [Unknown]
  - Cough [Unknown]
  - Polydipsia [Unknown]
  - Pallor [Unknown]
  - Dry mouth [Unknown]
  - Decreased appetite [Unknown]
  - Blood glucose decreased [Unknown]
  - Dysgeusia [Unknown]
  - Wrong technique in product usage process [Unknown]
  - Nausea [Unknown]
  - Wound [Unknown]
  - Swelling [Unknown]
  - Fibromyalgia [Unknown]
  - Osteoarthritis [Unknown]
  - Pain [Unknown]
  - Malaise [Unknown]
  - Hypersensitivity [Unknown]
  - Fatigue [Unknown]
  - Anxiety disorder [Unknown]
  - Asthenia [Unknown]
  - Tachycardia [Unknown]

NARRATIVE: CASE EVENT DATE: 20220221
